FAERS Safety Report 5723467-5 (Version None)
Quarter: 2008Q2

REPORT INFORMATION
  Report Type: 
  Country: None (occurrence: None)
  Receive Date: 20080425
  Receipt Date: 20070629
  Transmission Date: 20081010
  Serious: Yes (Other)
  Sender: FDA-Public Use
  Company Number: 2007325590

PATIENT
  Sex: Male

DRUGS (1)
  1. BENADRYL [Suspect]
     Dosage: 1/4 TO 1/2 BOTTLE,ORAL
     Route: 048

REACTIONS (1)
  - ACCIDENTAL OVERDOSE [None]
